FAERS Safety Report 12414773 (Version 1)
Quarter: 2016Q2

REPORT INFORMATION
  Report Type: Spontaneous
  Country: ZA (occurrence: ZA)
  Receive Date: 20160529
  Receipt Date: 20160529
  Transmission Date: 20160815
  Serious: Yes (Hospitalization, Other)
  Sender: FDA-Public Use
  Company Number: PHHY2016ZA071067

PATIENT
  Age: 84 Year
  Sex: Male

DRUGS (4)
  1. MEMANTINE HCL [Suspect]
     Active Substance: MEMANTINE
     Dosage: 10 MG, BID
     Route: 065
  2. TAREG [Suspect]
     Active Substance: VALSARTAN
     Indication: HYPERTENSION
     Dosage: 160 MG, QD
     Route: 065
     Dates: end: 201604
  3. TAREG [Suspect]
     Active Substance: VALSARTAN
     Dosage: UNK
     Route: 065
     Dates: start: 20160519
  4. MEMANTINE HCL [Suspect]
     Active Substance: MEMANTINE
     Indication: DEMENTIA ALZHEIMER^S TYPE
     Dosage: 5 MG, QHS
     Route: 065
     Dates: start: 20160331

REACTIONS (7)
  - Disorientation [Unknown]
  - Hypotension [Unknown]
  - Blood pressure increased [Recovering/Resolving]
  - Gait disturbance [Unknown]
  - Fall [Unknown]
  - Confusional state [Unknown]
  - Dysstasia [Unknown]

NARRATIVE: CASE EVENT DATE: 20160403
